FAERS Safety Report 6313838-0 (Version None)
Quarter: 2009Q3

REPORT INFORMATION
  Report Type: 
  Country: None (occurrence: None)
  Receive Date: 20090817
  Receipt Date: 20090817
  Transmission Date: 20100115
  Serious: Yes (Other)
  Sender: FDA-Public Use
  Company Number: None

PATIENT
  Age: 49 Year
  Sex: Female
  Weight: 56.6996 kg

DRUGS (1)
  1. ZICAM COLD REMEDY ZINCUM GLUCONICUM 2X ZICAM [Suspect]
     Indication: SINUSITIS
     Dosage: 1 GEL SWAB TWICE DAILY NASAL
     Route: 045
     Dates: start: 20081227, end: 20081228

REACTIONS (2)
  - AGEUSIA [None]
  - ANOSMIA [None]
